FAERS Safety Report 16973142 (Version 1)
Quarter: 2019Q4

REPORT INFORMATION
  Report Type: Not Available
  Country: None (occurrence: CN)
  Receive Date: 20191030
  Receipt Date: 20191030
  Transmission Date: 20200122
  Serious: Yes (Life-Threatening, Hospitalization)
  Sender: FDA-Public Use
  Company Number: CN-JIANGSU HENGRUI MEDICINE CO., LTD.-2076165

PATIENT
  Age: 60 Year
  Sex: Female
  Weight: 48 kg

DRUGS (8)
  1. IRINOTECAN HYDROCHLORIDE INJECTION, 20 MG/ML (2 ML AND 5 ML VIALS) (AN [Suspect]
     Active Substance: IRINOTECAN HYDROCHLORIDE
     Indication: ADENOCARCINOMA OF COLON
     Route: 041
     Dates: start: 20191001, end: 20191001
  2. OXALIPLATIN. [Suspect]
     Active Substance: OXALIPLATIN
     Route: 041
     Dates: start: 20191001, end: 20191001
  3. FLUOROURACIL. [Suspect]
     Active Substance: FLUOROURACIL
     Route: 042
     Dates: start: 20191001, end: 20191001
  4. SODIUM CHLORIDE. [Concomitant]
     Active Substance: SODIUM CHLORIDE
     Route: 041
     Dates: start: 20191001, end: 20191001
  5. BEVACIZUMAB INJECTION [Suspect]
     Active Substance: BEVACIZUMAB
     Route: 041
     Dates: start: 20191001, end: 20191001
  6. SODIUM CHLORIDE. [Concomitant]
     Active Substance: SODIUM CHLORIDE
     Route: 041
     Dates: start: 20191001, end: 20191001
  7. GLUCOSE INJECTION [Concomitant]
     Active Substance: DEXTROSE
     Route: 041
     Dates: start: 20191001, end: 20191001
  8. CALCIUM FOLINATE FOR INJECTION [Suspect]
     Active Substance: LEUCOVORIN CALCIUM
     Route: 041
     Dates: start: 20191001, end: 20191001

REACTIONS (4)
  - Neutrophil count decreased [Recovering/Resolving]
  - Leukoplakia oral [Recovering/Resolving]
  - White blood cell count decreased [Recovering/Resolving]
  - Pain [Recovering/Resolving]

NARRATIVE: CASE EVENT DATE: 20191010
